FAERS Safety Report 9219914 (Version 1)
Quarter: 2013Q2

REPORT INFORMATION
  Report Type: Spontaneous
  Country: JP (occurrence: None)
  Receive Date: 20130405
  Receipt Date: 20130405
  Transmission Date: 20140414
  Serious: Yes (Death)
  Sender: FDA-Public Use
  Company Number: JP-CLINIGEN HEALTHCARE LIMITED-003049

PATIENT
  Age: 55 Year
  Sex: Female

DRUGS (1)
  1. FOSCAVIR [Suspect]

REACTIONS (1)
  - Pneumonia bacterial [None]
